FAERS Safety Report 7652478-8 (Version None)
Quarter: 2011Q3

REPORT INFORMATION
  Report Type: 
  Country: None (occurrence: None)
  Receive Date: 20110801
  Receipt Date: 20110801
  Transmission Date: 20111222
  Serious: Yes (Hospitalization)
  Sender: FDA-Public Use
  Company Number: None

PATIENT
  Age: 80 Year
  Sex: Male
  Weight: 91.1 kg

DRUGS (2)
  1. FLUORESCEIN SODIUM [Suspect]
     Indication: OPHTHALMOLOGICAL EXAMINATION
     Dosage: 500MG ONCE IV
     Route: 042
     Dates: start: 20110726, end: 20110726
  2. FLUORESCEIN SODIUM [Suspect]
     Indication: DIABETES MELLITUS
     Dosage: 500MG ONCE IV
     Route: 042
     Dates: start: 20110726, end: 20110726

REACTIONS (6)
  - UNRESPONSIVE TO STIMULI [None]
  - HYPERHIDROSIS [None]
  - DIZZINESS [None]
  - CONVULSION [None]
  - FEELING HOT [None]
  - NAUSEA [None]
